FAERS Safety Report 18771894 (Version 2)
Quarter: 2021Q2

REPORT INFORMATION
  Report Type: Spontaneous
  Country: US (occurrence: US)
  Receive Date: 20210121
  Receipt Date: 20210401
  Transmission Date: 20210717
  Serious: No
  Sender: FDA-Public Use
  Company Number: US-MYLANLABS-2021M1003293

PATIENT
  Age: 45 Year
  Sex: Female

DRUGS (6)
  1. EPINEPHRINE. [Suspect]
     Active Substance: EPINEPHRINE
     Indication: HOT FLUSH
  2. EPINEPHRINE. [Suspect]
     Active Substance: EPINEPHRINE
     Indication: CHEST DISCOMFORT
  3. EPINEPHRINE. [Suspect]
     Active Substance: EPINEPHRINE
     Indication: BLOOD PRESSURE INCREASED
     Dosage: UNK
     Route: 030
     Dates: start: 20201231, end: 20201231
  4. EPINEPHRINE. [Suspect]
     Active Substance: EPINEPHRINE
     Indication: HEADACHE
  5. BENADRYL [Concomitant]
     Active Substance: DIPHENHYDRAMINE HYDROCHLORIDE
     Dosage: UNK
     Route: 042
  6. EPINEPHRINE. [Suspect]
     Active Substance: EPINEPHRINE
     Indication: HEART RATE INCREASED

REACTIONS (13)
  - Dizziness [Not Recovered/Not Resolved]
  - Feeling abnormal [Recovered/Resolved with Sequelae]
  - Chest discomfort [Recovered/Resolved with Sequelae]
  - Hyperhidrosis [Recovered/Resolved with Sequelae]
  - Pallor [Recovered/Resolved with Sequelae]
  - Flushing [Recovered/Resolved with Sequelae]
  - Headache [Recovered/Resolved with Sequelae]
  - Paraesthesia [Recovered/Resolved with Sequelae]
  - Paraesthesia oral [Recovered/Resolved with Sequelae]
  - Palpitations [Recovered/Resolved with Sequelae]
  - Angiopathy [Recovered/Resolved]
  - Cerebral disorder [Recovered/Resolved]
  - Poor peripheral circulation [Recovered/Resolved with Sequelae]

NARRATIVE: CASE EVENT DATE: 20201231
